FAERS Safety Report 6607284-X (Version None)
Quarter: 2010Q1

REPORT INFORMATION
  Report Type: 
  Country: None (occurrence: None)
  Receive Date: 20100228
  Receipt Date: 20100215
  Transmission Date: 20100710
  Serious: Yes (Death)
  Sender: FDA-Public Use
  Company Number: US-JNJFOC-20100208915

PATIENT
  Age: 47 Year
  Sex: Male
  Weight: 93.35 kg

DRUGS (7)
  1. FENTANYL [Suspect]
     Indication: DRUG USE FOR UNKNOWN INDICATION
  2. IBUPROFEN [Suspect]
     Route: 065
  3. IBUPROFEN [Suspect]
     Indication: DRUG USE FOR UNKNOWN INDICATION
     Route: 065
  4. FLUOXETINE [Suspect]
     Indication: DRUG USE FOR UNKNOWN INDICATION
  5. PROMETHAZINE [Suspect]
     Indication: DRUG USE FOR UNKNOWN INDICATION
     Route: 065
  6. TRAZODONE HCL [Suspect]
     Indication: DRUG USE FOR UNKNOWN INDICATION
     Route: 065
  7. HYDROCODONE [Suspect]
     Indication: DRUG USE FOR UNKNOWN INDICATION
     Route: 065

REACTIONS (3)
  - DRUG TOXICITY [None]
  - HEPATIC CONGESTION [None]
  - HEPATIC STEATOSIS [None]
